FAERS Safety Report 8935322 (Version 2)
Quarter: 2013Q3

REPORT INFORMATION
  Report Type: Spontaneous
  Country: GB (occurrence: GB)
  Receive Date: 20121129
  Receipt Date: 20130930
  Transmission Date: 20140515
  Serious: Yes (Life-Threatening)
  Sender: FDA-Public Use
  Company Number: GB-PFIZER INC-2012298738

PATIENT
  Age: 62 Year
  Sex: Male
  Weight: 58 kg

DRUGS (2)
  1. CHAMPIX [Suspect]
     Dosage: 1 MG, 2X/DAILY
     Route: 048
     Dates: start: 201209
  2. RANITIDINE [Concomitant]
     Indication: DYSPEPSIA
     Dosage: 300 MG, UNK
     Route: 048
     Dates: start: 1999

REACTIONS (1)
  - Grand mal convulsion [Recovered/Resolved]
